FAERS Safety Report 13600099 (Version 1)
Quarter: 2017Q2

REPORT INFORMATION
  Report Type: Spontaneous
  Country: US (occurrence: US)
  Receive Date: 20170531
  Receipt Date: 20170531
  Transmission Date: 20170830
  Serious: Yes (Hospitalization)
  Sender: FDA-Public Use
  Company Number: None

PATIENT
  Age: 88 Year
  Sex: Male

DRUGS (1)
  1. APIXABAN [Suspect]
     Active Substance: APIXABAN
     Indication: ATRIAL FIBRILLATION
     Route: 048
     Dates: start: 20170417, end: 20170428

REACTIONS (4)
  - Pneumonia [None]
  - Urinary tract infection [None]
  - Prostatic operation [None]
  - Haematochezia [None]

NARRATIVE: CASE EVENT DATE: 20170428
